FAERS Safety Report 19381962 (Version 1)
Quarter: 2021Q2

REPORT INFORMATION
  Report Type: Spontaneous
  Country: US (occurrence: US)
  Receive Date: 20210607
  Receipt Date: 20210607
  Transmission Date: 20210717
  Serious: Yes (Hospitalization, Other)
  Sender: FDA-Public Use
  Company Number: US-CIPLA LTD.-2021US03903

PATIENT

DRUGS (2)
  1. METOPROLOL. [Suspect]
     Active Substance: METOPROLOL
     Indication: MITRAL VALVE STENOSIS
     Dosage: UNK
     Route: 065
  2. ENOXAPARIN [Suspect]
     Active Substance: ENOXAPARIN
     Indication: MITRAL VALVE STENOSIS
     Dosage: UNK
     Route: 065

REACTIONS (3)
  - Foetal distress syndrome [Unknown]
  - Exposure during pregnancy [Unknown]
  - Premature delivery [Unknown]
